FAERS Safety Report 11143611 (Version 2)
Quarter: 2015Q3

REPORT INFORMATION
  Report Type: Spontaneous
  Country: US (occurrence: US)
  Receive Date: 20150526
  Receipt Date: 20150729
  Transmission Date: 20151125
  Serious: Yes (Hospitalization)
  Sender: FDA-Public Use
  Company Number: US-ACCORD-030920

PATIENT
  Age: 16 Year
  Sex: Female
  Weight: 59 kg

DRUGS (3)
  1. CYCLOBENZAPRINE [Interacting]
     Active Substance: CYCLOBENZAPRINE
     Dosage: 2 MG/KG
  2. LACOSAMIDE [Interacting]
     Active Substance: LACOSAMIDE
     Dosage: 76 MG/KG
  3. LEVETIRACETAM. [Suspect]
     Active Substance: LEVETIRACETAM

REACTIONS (8)
  - Generalised tonic-clonic seizure [Recovering/Resolving]
  - Pneumonia aspiration [Unknown]
  - Intentional overdose [Unknown]
  - Intentional self-injury [Unknown]
  - Metabolic acidosis [Recovered/Resolved]
  - Drug interaction [Unknown]
  - Cardiac arrest [Recovered/Resolved]
  - Respiratory acidosis [Recovered/Resolved]
